FAERS Safety Report 25537508 (Version 1)
Quarter: 2025Q3

REPORT INFORMATION
  Report Type: Spontaneous
  Country: EU (occurrence: EU)
  Receive Date: 20250710
  Receipt Date: 20250710
  Transmission Date: 20251020
  Serious: Yes (Other)
  Sender: NORDIC PHARMA
  Company Number: EU-NORDICGR-063146

PATIENT
  Age: 48 Year
  Sex: Female

DRUGS (2)
  1. METHOTREXATE [Suspect]
     Active Substance: METHOTREXATE
     Indication: Rheumatoid arthritis
     Route: 065
  2. Progestogen-only pill [Concomitant]
     Indication: Contraception
     Route: 065

REACTIONS (3)
  - Anogenital dysplasia [Unknown]
  - Cervical dysplasia [Unknown]
  - Vaginal dysplasia [Unknown]
